FAERS Safety Report 7034694-1 (Version None)
Quarter: 2010Q4

REPORT INFORMATION
  Report Type: 
  Country: None (occurrence: None)
  Receive Date: 20101008
  Receipt Date: 20100928
  Transmission Date: 20110411
  Serious: Yes (Disabling, Other)
  Sender: FDA-Public Use
  Company Number: PHHY2010US64634

PATIENT
  Age: 34 Year
  Sex: Female
  Weight: 75.3 kg

DRUGS (2)
  1. TRILEPTAL [Suspect]
     Dosage: 0.5 DF, BID
     Dates: start: 20080101
  2. GEODON [Suspect]
     Indication: SCHIZOAFFECTIVE DISORDER
     Dosage: 20 MG, 2 CAPSULES AT MORNING, 7 CAPSULES AT HS
     Route: 048
     Dates: start: 20040101, end: 20100101

REACTIONS (5)
  - BURNING SENSATION [None]
  - EOSINOPHIL COUNT INCREASED [None]
  - MUSCULOSKELETAL STIFFNESS [None]
  - PARAESTHESIA [None]
  - REPETITIVE STRAIN INJURY [None]
